FAERS Safety Report 4630256-1 (Version None)
Quarter: 2005Q2

REPORT INFORMATION
  Report Type: 
  Country: None (occurrence: None)
  Receive Date: 20050406
  Receipt Date: 20050321
  Transmission Date: 20051028
  Serious: Yes (Hospitalization)
  Sender: FDA-Public Use
  Company Number: 213548

PATIENT
  Age: 35 Year
  Sex: Female
  Weight: 77 kg

DRUGS (4)
  1. HERCEPTIN [Suspect]
     Indication: BREAST CANCER METASTATIC
     Dosage: 630 MG, INTRAVENOUS
     Route: 042
     Dates: start: 20041208
  2. TAXOTERE [Suspect]
     Indication: BREAST CANCER METASTATIC
     Dosage: 170 MG, INTRAVENOUS
     Route: 042
     Dates: start: 20041208, end: 20050120
  3. LOCOID [Concomitant]
  4. IMODIUM [Concomitant]

REACTIONS (6)
  - BODY TEMPERATURE INCREASED [None]
  - CHEILITIS [None]
  - DIARRHOEA [None]
  - EYELID BLEEDING [None]
  - MUCOSAL INFLAMMATION [None]
  - TOXIC SKIN ERUPTION [None]
